FAERS Safety Report 22172241 (Version 1)
Quarter: 2023Q2

REPORT INFORMATION
  Report Type: Report from Study
  Country: US (occurrence: US)
  Receive Date: 20230404
  Receipt Date: 20230404
  Transmission Date: 20230722
  Serious: Yes (Other)
  Sender: FDA-Public Use
  Company Number: US-MYLANLABS-2023M1034727

PATIENT
  Age: 60 Year
  Sex: Female

DRUGS (6)
  1. PREDNISONE [Suspect]
     Active Substance: PREDNISONE
     Indication: Morphoea
     Dosage: 40 MILLIGRAM, QD
     Route: 065
  2. MYCOPHENOLIC ACID [Suspect]
     Active Substance: MYCOPHENOLIC ACID
     Indication: Morphoea
     Dosage: 1080 MILLIGRAM, BID
     Route: 065
  3. MYCOPHENOLIC ACID [Suspect]
     Active Substance: MYCOPHENOLIC ACID
     Indication: Immunosuppressant drug therapy
     Dosage: UNK (DOSE TAPERED)
     Route: 065
  4. SOLU-MEDROL [Suspect]
     Active Substance: METHYLPREDNISOLONE SODIUM SUCCINATE
     Indication: Morphoea
     Dosage: 1000 MILLIGRAM, QW (7 DOSES)
     Route: 042
  5. HUMAN IMMUNOGLOBULIN G [Suspect]
     Active Substance: HUMAN IMMUNOGLOBULIN G
     Indication: Morphoea
     Dosage: 2000 MILLIGRAM/KILOGRAM (EVERY 4 WEEKS)
     Route: 042
  6. RITUXIMAB [Suspect]
     Active Substance: RITUXIMAB
     Indication: Morphoea
     Dosage: 1000 MILLIGRAM, BIWEEKLY, 2 DOSES
     Route: 065

REACTIONS (1)
  - Treatment failure [Unknown]
